FAERS Safety Report 12586014 (Version 1)
Quarter: 2016Q3

REPORT INFORMATION
  Report Type: Spontaneous
  Country: JP (occurrence: JP)
  Receive Date: 20160725
  Receipt Date: 20160725
  Transmission Date: 20161109
  Serious: Yes (Hospitalization)
  Sender: FDA-Public Use
  Company Number: JP-INDICUS PHARMA-000433

PATIENT
  Age: 60 Year
  Sex: Male
  Weight: 72.8 kg

DRUGS (8)
  1. LEVOTHYROXINE. [Concomitant]
     Active Substance: LEVOTHYROXINE
  2. LOSARTAN. [Concomitant]
     Active Substance: LOSARTAN
  3. ROSUVASTATIN/ROSUVASTATIN CALCIUM [Concomitant]
  4. INSULIN ASPART [Concomitant]
     Active Substance: INSULIN ASPART
     Dosage: BEFORE EACH MEAL (6 TO 10 UNITS)
  5. METFORMIN [Suspect]
     Active Substance: METFORMIN HYDROCHLORIDE
     Indication: TYPE 2 DIABETES MELLITUS
  6. CANAGLIFLOZIN [Suspect]
     Active Substance: CANAGLIFLOZIN
     Indication: DIABETES MELLITUS MANAGEMENT
  7. INSULIN GLARGINE [Concomitant]
     Active Substance: INSULIN GLARGINE
     Dosage: ONCE IN THE MORNING (24 UNITS)
  8. INSULIN [Concomitant]
     Active Substance: INSULIN NOS

REACTIONS (6)
  - Shock [Recovered/Resolved]
  - Diabetic ketoacidosis [Recovered/Resolved]
  - Gastrointestinal necrosis [Recovered/Resolved]
  - Lactic acidosis [Recovered/Resolved]
  - Intestinal ischaemia [Recovered/Resolved]
  - Disseminated intravascular coagulation [Recovered/Resolved]
